FAERS Safety Report 19513470 (Version 2)
Quarter: 2021Q3

REPORT INFORMATION
  Report Type: Spontaneous
  Country: US (occurrence: US)
  Receive Date: 20210709
  Receipt Date: 20210806
  Transmission Date: 20211014
  Serious: No
  Sender: FDA-Public Use
  Company Number: US-ASTRAZENECA-2021A547521

PATIENT
  Age: 767 Month
  Sex: Male
  Weight: 90.7 kg

DRUGS (6)
  1. ATORVASTATIN [Concomitant]
     Active Substance: ATORVASTATIN
     Indication: BLOOD CHOLESTEROL
     Dosage: ONE TIME A DAY AT NIGHT
     Route: 048
  2. IMFINZI [Suspect]
     Active Substance: DURVALUMAB
     Indication: LUNG ADENOCARCINOMA RECURRENT
     Route: 042
     Dates: start: 202008
  3. METOPROLOL. [Suspect]
     Active Substance: METOPROLOL
     Route: 065
  4. PREGABALIN. [Concomitant]
     Active Substance: PREGABALIN
     Route: 048
  5. METOPROLOL. [Suspect]
     Active Substance: METOPROLOL
     Route: 065
  6. METORPOLOL [Concomitant]
     Active Substance: METOPROLOL
     Indication: CARDIAC DISORDER
     Route: 048
     Dates: start: 202003

REACTIONS (6)
  - Pruritus genital [Unknown]
  - Pruritus [Not Recovered/Not Resolved]
  - Dysuria [Unknown]
  - Pain [Not Recovered/Not Resolved]
  - Rash [Unknown]
  - Discomfort [Not Recovered/Not Resolved]

NARRATIVE: CASE EVENT DATE: 202011
